FAERS Safety Report 18581459 (Version 2)
Quarter: 2021Q2

REPORT INFORMATION
  Report Type: Spontaneous
  Country: CA (occurrence: CA)
  Receive Date: 20201204
  Receipt Date: 20210510
  Transmission Date: 20210717
  Serious: Yes (Hospitalization, Other)
  Sender: FDA-Public Use
  Company Number: CA-STEMLINE THERAPEUTICS, INC.-2020ST000074

PATIENT
  Age: 80 Year
  Sex: Female

DRUGS (1)
  1. ELZONRIS [Suspect]
     Active Substance: TAGRAXOFUSP-ERZS
     Indication: BLASTIC PLASMACYTOID DENDRITIC CELL NEOPLASIA
     Route: 042

REACTIONS (6)
  - Capillary leak syndrome [Unknown]
  - Infection [Unknown]
  - Blue toe syndrome [Recovered/Resolved with Sequelae]
  - Liver function test increased [Unknown]
  - Renal failure [Not Recovered/Not Resolved]
  - Skin discolouration [Recovering/Resolving]

NARRATIVE: CASE EVENT DATE: 20201118
